FAERS Safety Report 13073923 (Version 2)
Quarter: 2017Q2

REPORT INFORMATION
  Report Type: Spontaneous
  Country: RU (occurrence: RU)
  Receive Date: 20161229
  Receipt Date: 20170525
  Transmission Date: 20170830
  Serious: Yes (Other)
  Sender: FDA-Public Use
  Company Number: RU-BAUSCH-BL-2016-032486

PATIENT
  Age: 10 Month
  Sex: Female

DRUGS (3)
  1. SUPRASTIN [Concomitant]
     Active Substance: CHLOROPYRAMINE HYDROCHLORIDE
     Indication: PRODUCT USED FOR UNKNOWN INDICATION
     Dates: start: 20161220
  2. FENISTIL [Concomitant]
     Active Substance: DIMETHINDENE
     Indication: PRODUCT USED FOR UNKNOWN INDICATION
     Dates: start: 20161220
  3. ELIDEL [Suspect]
     Active Substance: PIMECROLIMUS
     Indication: RASH ERYTHEMATOUS
     Dosage: VERY SMALL PEA
     Route: 061
     Dates: start: 20161220, end: 20161220

REACTIONS (5)
  - Rhinorrhoea [Recovered/Resolved]
  - Application site erythema [Recovered/Resolved]
  - Off label use [Recovered/Resolved]
  - Nasal congestion [Recovered/Resolved]
  - Cough [Recovered/Resolved]

NARRATIVE: CASE EVENT DATE: 20161220
